FAERS Safety Report 5768332-2 (Version None)
Quarter: 2008Q2

REPORT INFORMATION
  Report Type: 
  Country: None (occurrence: None)
  Receive Date: 20080612
  Receipt Date: 20080326
  Transmission Date: 20081010
  Serious: Yes (Other)
  Sender: FDA-Public Use
  Company Number: US-ABBOTT-08P-163-0438676-00

PATIENT
  Sex: Male
  Weight: 109 kg

DRUGS (3)
  1. HUMIRA [Suspect]
     Indication: RHEUMATOID ARTHRITIS
     Route: 058
     Dates: start: 20050601
  2. ADVIL [Concomitant]
     Indication: RHEUMATOID ARTHRITIS
     Route: 048
  3. LEVOFLOXACIN [Concomitant]
     Indication: GALLBLADDER PERFORATION
     Route: 048
     Dates: start: 20080212

REACTIONS (3)
  - GALLBLADDER PERFORATION [None]
  - PAIN [None]
  - PROSTATE CANCER [None]
